FAERS Safety Report 9072421 (Version 1)
Quarter: 2013Q1

REPORT INFORMATION
  Report Type: Spontaneous
  Country: FR (occurrence: FR)
  Receive Date: 20130207
  Receipt Date: 20130207
  Transmission Date: 20140127
  Serious: Yes (Other)
  Sender: FDA-Public Use
  Company Number: FR-PFIZER INC-2013046569

PATIENT
  Age: 61 Year
  Sex: Female

DRUGS (6)
  1. ADRIBLASTINE [Suspect]
     Indication: PLASMA CELL MYELOMA
     Dosage: UNK
     Route: 042
     Dates: start: 200410, end: 200606
  2. REVLIMID [Suspect]
     Indication: PLASMA CELL MYELOMA
     Dosage: 12 COURSES OF 28 DAYS
     Route: 048
     Dates: start: 201004, end: 201103
  3. DEXAMETHASONE [Suspect]
     Indication: PLASMA CELL MYELOMA
     Dosage: 12 COURSES OF 28 DAYS
     Route: 042
     Dates: start: 201004, end: 201103
  4. DEXAMETHASONE [Suspect]
     Dosage: UNK
     Route: 042
     Dates: start: 200410, end: 200606
  5. ONCOVIN [Suspect]
     Indication: PLASMA CELL MYELOMA
     Dosage: 1 MG, UNK
     Route: 042
     Dates: start: 200410, end: 200606
  6. VELCADE [Suspect]
     Indication: PLASMA CELL MYELOMA
     Dosage: UNK
     Route: 042
     Dates: start: 200901, end: 2009

REACTIONS (2)
  - Second primary malignancy [Not Recovered/Not Resolved]
  - Bronchioloalveolar carcinoma [Not Recovered/Not Resolved]
